FAERS Safety Report 15514631 (Version 1)
Quarter: 2018Q4

REPORT INFORMATION
  Report Type: Spontaneous
  Country: DE (occurrence: DE)
  Receive Date: 20181016
  Receipt Date: 20181016
  Transmission Date: 20190205
  Serious: Yes (Death, Life-Threatening, Hospitalization, Other)
  Sender: FDA-Public Use
  Company Number: DE-JNJFOC-20180132969

PATIENT
  Age: 36 Year
  Sex: Male
  Weight: 68 kg

DRUGS (3)
  1. SALOFALK GR [Concomitant]
     Indication: COLITIS ULCERATIVE
     Route: 065
     Dates: start: 20141006, end: 20180909
  2. SIMPONI [Suspect]
     Active Substance: GOLIMUMAB
     Indication: COLITIS ULCERATIVE
     Route: 058
     Dates: start: 20170407
  3. URSOFALK [Concomitant]
     Active Substance: URSODIOL
     Indication: CHOLANGITIS SCLEROSING
     Route: 065
     Dates: start: 20141006, end: 20180909

REACTIONS (7)
  - Cholangiocarcinoma [Unknown]
  - Colitis ulcerative [Not Recovered/Not Resolved]
  - Metastases to liver [Unknown]
  - Acute kidney injury [Fatal]
  - Respiratory syncytial virus infection [Unknown]
  - Acute on chronic liver failure [Fatal]
  - Liver abscess [Unknown]

NARRATIVE: CASE EVENT DATE: 20171106
